FAERS Safety Report 24586938 (Version 8)
Quarter: 2024Q4

REPORT INFORMATION
  Report Type: Spontaneous
  Country: US (occurrence: US)
  Receive Date: 20241107
  Receipt Date: 20241228
  Transmission Date: 20250115
  Serious: Yes (Hospitalization)
  Sender: ROCHE
  Company Number: US-ROCHE-10000121787

PATIENT
  Age: 60 Year
  Sex: Female
  Weight: 76.2 kg

DRUGS (13)
  1. XOLAIR [Suspect]
     Active Substance: OMALIZUMAB
     Indication: Mast cell activation syndrome
     Route: 058
     Dates: start: 2022, end: 2024
  2. XOLAIR [Suspect]
     Active Substance: OMALIZUMAB
     Indication: Asthma
  3. XOLAIR [Suspect]
     Active Substance: OMALIZUMAB
     Indication: Mast cell activation syndrome
     Route: 058
     Dates: start: 20241002
  4. XOLAIR [Suspect]
     Active Substance: OMALIZUMAB
     Indication: Asthma
  5. XOLAIR [Suspect]
     Active Substance: OMALIZUMAB
     Indication: Chronic spontaneous urticaria
  6. PEPCID [Concomitant]
     Active Substance: FAMOTIDINE
     Indication: Mast cell activation syndrome
     Route: 065
  7. ZYRTEC [Concomitant]
     Active Substance: CETIRIZINE HYDROCHLORIDE
     Indication: Mast cell activation syndrome
     Route: 065
  8. SYMBICORT [Concomitant]
     Active Substance: BUDESONIDE\FORMOTEROL FUMARATE DIHYDRATE
     Indication: Mast cell activation syndrome
     Dosage: 2 PUFFS TWICE A DAY
     Route: 065
  9. ALBUTEROL [Concomitant]
     Active Substance: ALBUTEROL
     Indication: Mast cell activation syndrome
     Dosage: VIA NEBULIZER AS NEEDED
     Route: 055
  10. ALBUTEROL SULFATE [Concomitant]
     Active Substance: ALBUTEROL SULFATE
     Indication: Mast cell activation syndrome
     Dosage: AS NEEDED
     Route: 065
  11. IPRATROPIUM [Concomitant]
     Active Substance: IPRATROPIUM
     Indication: Mast cell activation syndrome
     Dosage: AS NEEDED
     Route: 045
  12. BENADRYL [Concomitant]
     Active Substance: DIPHENHYDRAMINE HYDROCHLORIDE
     Indication: Mast cell activation syndrome
     Dosage: AS NEEDED
     Route: 065
  13. PREDNISONE [Concomitant]
     Active Substance: PREDNISONE
     Indication: Mast cell activation syndrome
     Dosage: START WITH 20 MG, THEN GO TO 40 MG, OR IF NEEDED 60 MG AS NEEDED
     Route: 065

REACTIONS (12)
  - Anaphylactic shock [Recovered/Resolved with Sequelae]
  - Livedo reticularis [Recovered/Resolved]
  - Skin warm [Recovered/Resolved]
  - Product complaint [Unknown]
  - Product packaging difficult to open [Unknown]
  - Needle issue [Unknown]
  - Product dose omission issue [Unknown]
  - Temperature intolerance [Unknown]
  - Nasopharyngitis [Unknown]
  - Tremor [Unknown]
  - Gastrointestinal disorder [Unknown]
  - Humidity intolerance [Unknown]

NARRATIVE: CASE EVENT DATE: 20241030
